FAERS Safety Report 5424132-4 (Version None)
Quarter: 2007Q3

REPORT INFORMATION
  Report Type: 
  Country: None (occurrence: None)
  Receive Date: 20070823
  Receipt Date: 20070815
  Transmission Date: 20080115
  Serious: Yes (Disabling, Other)
  Sender: FDA-Public Use
  Company Number: AU-PFIZER INC-2007046401

PATIENT
  Age: 63 Year
  Sex: Male

DRUGS (14)
  1. LIPITOR [Suspect]
     Indication: BLOOD CHOLESTEROL
     Route: 048
  2. BACLOFEN [Concomitant]
  3. PARACETAMOL [Concomitant]
  4. PANADOL [Concomitant]
  5. NEURONTIN [Concomitant]
  6. CAPADEX [Concomitant]
     Dosage: TEXT:32.5/325MG-FREQ:1 TO 2 AT NIGHT
  7. COVERSYL [Concomitant]
  8. FRUSEMIDE [Concomitant]
  9. ISCOVER [Concomitant]
  10. DIAFORMIN [Concomitant]
  11. STAPHYLEX [Concomitant]
  12. AUGMENTIN '125' [Concomitant]
  13. POTASSIUM CHLORIDE [Concomitant]
  14. SALBUTAMOL SULFATE [Concomitant]
     Dosage: TEXT:2 PUFFS BY MOUTH-FREQ:EVERY FOUR HOURS WHEN REQUIRED
     Route: 055

REACTIONS (4)
  - DEAFNESS [None]
  - DEAFNESS UNILATERAL [None]
  - NERVOUS SYSTEM DISORDER [None]
  - TINNITUS [None]
